FAERS Safety Report 17911153 (Version 3)
Quarter: 2020Q3

REPORT INFORMATION
  Report Type: Report from Study
  Country: DE (occurrence: DE)
  Receive Date: 20200618
  Receipt Date: 20200818
  Transmission Date: 20201103
  Serious: Yes (Death, Hospitalization)
  Sender: FDA-Public Use
  Company Number: DE-KARYOPHARM-2020KPT000581

PATIENT
  Age: 56 Year
  Sex: Male

DRUGS (2)
  1. SELINEXOR [Suspect]
     Active Substance: SELINEXOR
     Indication: MYELODYSPLASTIC SYNDROME
     Dosage: 60 MG, 2X/WEEK
     Route: 048
     Dates: start: 20200430, end: 20200602
  2. DECITABINE. [Concomitant]
     Active Substance: DECITABINE
     Indication: MYELODYSPLASTIC SYNDROME
     Dosage: 20 MG/M2
     Dates: start: 20200504, end: 20200602

REACTIONS (3)
  - Neutropenia [Not Recovered/Not Resolved]
  - Pyrexia [Not Recovered/Not Resolved]
  - Pancytopenia [Not Recovered/Not Resolved]

NARRATIVE: CASE EVENT DATE: 20200519
